FAERS Safety Report 5340590-8 (Version None)
Quarter: 2007Q2

REPORT INFORMATION
  Report Type: 
  Country: None (occurrence: None)
  Receive Date: 20070531
  Receipt Date: 20070521
  Transmission Date: 20071010
  Serious: Yes (Other)
  Sender: FDA-Public Use
  Company Number: US-PFIZER INC-2007041436

PATIENT
  Sex: Female

DRUGS (1)
  1. XALATAN [Suspect]

REACTIONS (4)
  - ANAPHYLACTIC REACTION [None]
  - EYE PRURITUS [None]
  - OCULAR HYPERAEMIA [None]
  - URTICARIA [None]
